FAERS Safety Report 6497613-2 (Version None)
Quarter: 2009Q4

REPORT INFORMATION
  Report Type: 
  Country: None (occurrence: None)
  Receive Date: 20091211
  Receipt Date: 20091204
  Transmission Date: 20100525
  Serious: Yes (Life-Threatening, Hospitalization)
  Sender: FDA-Public Use
  Company Number: ADR52962009

PATIENT
  Age: 73 Year
  Sex: Female

DRUGS (10)
  1. ALENDRONATE SODIUM [Suspect]
     Indication: OSTEOPOROSIS
     Dosage: 70 MG - 1/1 WEEK ORAL
     Route: 048
     Dates: start: 20090928, end: 20091119
  2. ARTHROTEC [Concomitant]
  3. AMOXICILLIN [Concomitant]
  4. BENDROFLUMETHIAZIDE [Concomitant]
  5. CALCIUM AND VITAMIN D [Concomitant]
  6. CODEINE PHOSPHATE [Concomitant]
  7. DOTHIEPIN HYDROCHLORIDE [Concomitant]
  8. ENALAPRIL [Concomitant]
  9. IPRATROPIUM BROMIDE [Concomitant]
  10. SERETIDE [Concomitant]

REACTIONS (3)
  - ELECTROMECHANICAL DISSOCIATION [None]
  - GASTRIC ULCER HAEMORRHAGE [None]
  - HAEMATEMESIS [None]
